FAERS Safety Report 23317014 (Version 1)
Quarter: 2023Q4

REPORT INFORMATION
  Report Type: Spontaneous
  Country: US (occurrence: None)
  Receive Date: 20231219
  Receipt Date: 20231219
  Transmission Date: 20240110
  Serious: No
  Sender: FDA-Public Use
  Company Number: US-ROCHE-3419682

PATIENT

DRUGS (1)
  1. HEMLIBRA [Suspect]
     Active Substance: EMICIZUMAB-KXWH
     Indication: Product used for unknown indication
     Route: 065
     Dates: start: 2020

REACTIONS (4)
  - Fatigue [Unknown]
  - Haemorrhage [Recovering/Resolving]
  - Haemarthrosis [Recovered/Resolved]
  - Arthralgia [Recovered/Resolved]
